FAERS Safety Report 6712905-7 (Version None)
Quarter: 2010Q2

REPORT INFORMATION
  Report Type: 
  Country: None (occurrence: None)
  Receive Date: 20100505
  Receipt Date: 20100505
  Transmission Date: 20101027
  Serious: No
  Sender: FDA-Public Use
  Company Number: None

PATIENT
  Age: 89 Year
  Sex: Female

DRUGS (1)
  1. ROCEPHIN [Suspect]
     Indication: PNEUMONIA
     Dosage: 1 GM DAILY IV PIGGYBACK
     Route: 042
     Dates: start: 20100410

REACTIONS (2)
  - CONFUSIONAL STATE [None]
  - FLUSHING [None]
